FAERS Safety Report 7486232-7 (Version None)
Quarter: 2011Q2

REPORT INFORMATION
  Report Type: 
  Country: None (occurrence: None)
  Receive Date: 20110517
  Receipt Date: 20110215
  Transmission Date: 20111010
  Serious: No
  Sender: FDA-Public Use
  Company Number: A0913770A

PATIENT
  Sex: Male

DRUGS (7)
  1. VOTRIENT [Suspect]
     Indication: LEIOMYOSARCOMA
     Dosage: 800MG PER DAY
     Route: 048
     Dates: start: 20101220, end: 20110213
  2. GLIPIZIDE [Concomitant]
  3. MEDICATION FOR HIGH BLOOD PRESSURE [Concomitant]
  4. PREVACID [Concomitant]
  5. HYDROXYZINE [Concomitant]
  6. COZAAR [Concomitant]
  7. AMLODIPINE [Concomitant]

REACTIONS (2)
  - PRURITUS [None]
  - DRUG INEFFECTIVE [None]
